FAERS Safety Report 7955848-3 (Version None)
Quarter: 2011Q4

REPORT INFORMATION
  Report Type: 
  Country: None (occurrence: None)
  Receive Date: 20111205
  Receipt Date: 20111129
  Transmission Date: 20120403
  Serious: No
  Sender: FDA-Public Use
  Company Number: US-BIOGENIDEC-2011BI025921

PATIENT
  Age: 25 Year
  Sex: Female

DRUGS (5)
  1. ELAVIL [Concomitant]
     Indication: MIGRAINE
     Route: 048
  2. TYSABRI [Suspect]
     Indication: MULTIPLE SCLEROSIS
     Route: 042
     Dates: start: 20100301
  3. ELAVIL [Concomitant]
     Indication: OPTIC NEURITIS
     Route: 048
  4. EXCEDRIN (MIGRAINE) [Concomitant]
     Indication: MIGRAINE
     Route: 048
  5. AXERT [Concomitant]
     Indication: MIGRAINE

REACTIONS (4)
  - AMNESIA [None]
  - PARAESTHESIA [None]
  - ARTHRALGIA [None]
  - BAND SENSATION [None]
